FAERS Safety Report 9475668 (Version 2)
Quarter: 2013Q4

REPORT INFORMATION
  Report Type: Spontaneous
  Country: US (occurrence: US)
  Receive Date: 20130826
  Receipt Date: 20131024
  Transmission Date: 20140711
  Serious: Yes (Life-Threatening, Hospitalization)
  Sender: FDA-Public Use
  Company Number: PHEH2013US017879

PATIENT
  Age: 60 Year
  Sex: Female

DRUGS (12)
  1. EXFORGE [Suspect]
     Dosage: 1 DF (VALS 320 MG, AMLO 10 MG) QD
     Route: 048
  2. CELEBREX [Concomitant]
     Dosage: 200 MG, UNK
  3. ZYRTEC [Concomitant]
     Dosage: UNK UKN, UNK
  4. FLEXERIL [Concomitant]
     Dosage: 10 MG, UNK
  5. NEURONTIN [Concomitant]
     Dosage: 100 MG, UNK
  6. GLUCOTROL [Concomitant]
     Dosage: 5 MG, UNK
  7. LEVEMIR [Concomitant]
     Indication: DIABETES MELLITUS
     Dosage: UNK UKN, UNK
  8. LOVAZA [Concomitant]
     Dosage: 1 G, UNK
  9. BYSTOLIC [Concomitant]
     Dosage: 5 MG, UNK
  10. JANUMET [Concomitant]
     Dosage: (1000 MG MET/ 5 MG VILDA)
  11. ULORIC [Concomitant]
     Dosage: 80 MG, UNK
  12. ERGOCALCIFEROL [Concomitant]
     Dosage: 5000 IU, UNK

REACTIONS (1)
  - Uterine cancer [Unknown]
